FAERS Safety Report 9528239 (Version 1)
Quarter: 2013Q1

REPORT INFORMATION
  Report Type: Spontaneous
  Country: US (occurrence: None)
  Receive Date: 20130314
  Receipt Date: 20130314
  Transmission Date: 20140127
  Serious: No
  Sender: FDA-Public Use
  Company Number: 1211USA011423

PATIENT
  Sex: Female
  Weight: 84.8 kg

DRUGS (9)
  1. VICTRELIS (BOCEPREVIR) CAPSULE, 200MG [Suspect]
     Route: 048
  2. HYDROCHLOROT (HYDROCHLOROTHIAZIDE) [Concomitant]
  3. VITAMIN E [Concomitant]
  4. ALBUTEROL SULFATE (ALBUTEROL SULFATE) [Concomitant]
  5. NEXIUM (ESOMEPRAZOLE MAGNESIUM) [Concomitant]
  6. IBUPROFEN (IBUPROFEN) [Concomitant]
  7. ASCORBIC ACID (ASCORBIC ACID) [Concomitant]
  8. CALCIUM (UNSPECIFIED) (+) VITAMIN D (UNSPECIFIED) [Concomitant]
  9. ALBUTEROL SULFATE (ALBUTEROL SULFATE) [Concomitant]

REACTIONS (2)
  - Haemoglobin decreased [None]
  - Platelet count decreased [None]
